FAERS Safety Report 5763816-5 (Version None)
Quarter: 2008Q2

REPORT INFORMATION
  Report Type: 
  Country: None (occurrence: None)
  Receive Date: 20080606
  Receipt Date: 20080606
  Transmission Date: 20081010
  Serious: Yes (Life-Threatening, Hospitalization)
  Sender: FDA-Public Use
  Company Number: None

PATIENT
  Sex: Female
  Weight: 58.9676 kg

DRUGS (1)
  1. LAMICTAL [Suspect]
     Indication: DEPRESSION
     Dosage: 25MG DAILY PO
     Route: 048
     Dates: start: 20080414

REACTIONS (3)
  - RESPIRATORY DISTRESS [None]
  - RESPIRATORY FAILURE [None]
  - STATUS ASTHMATICUS [None]
